FAERS Safety Report 5728359-3 (Version None)
Quarter: 2008Q2

REPORT INFORMATION
  Report Type: 
  Country: None (occurrence: None)
  Receive Date: 20080506
  Receipt Date: 20080430
  Transmission Date: 20081010
  Serious: Yes (Other)
  Sender: FDA-Public Use
  Company Number: PHEH2007US08737

PATIENT
  Age: 32 Year
  Sex: Female

DRUGS (3)
  1. VITAMIN TAB [Concomitant]
     Dosage: 1 TABLET, QD
     Route: 048
  2. FOLIC ACID [Concomitant]
     Dosage: 3 MG, QD
     Route: 048
     Dates: start: 20070515
  3. PARLODEL [Suspect]
     Indication: BLOOD PROLACTIN INCREASED
     Dosage: UNK, UNK
     Route: 048
     Dates: end: 20070515

REACTIONS (5)
  - BREECH PRESENTATION [None]
  - CAESAREAN SECTION [None]
  - CONVULSION [None]
  - DRUG EXPOSURE DURING PREGNANCY [None]
  - NORMAL NEWBORN [None]
